FAERS Safety Report 8084316-6 (Version None)
Quarter: 2012Q1

REPORT INFORMATION
  Report Type: 
  Country: None (occurrence: None)
  Receive Date: 20120128
  Receipt Date: 20110308
  Transmission Date: 20120608
  Serious: No
  Sender: FDA-Public Use
  Company Number: US-ABBOTT-11P-163-0710033-00

PATIENT
  Sex: Male
  Weight: 106.69 kg

DRUGS (2)
  1. HUMIRA [Suspect]
     Dates: start: 20110215
  2. HUMIRA [Suspect]
     Indication: PSORIASIS
     Dates: start: 20091101, end: 20101001

REACTIONS (4)
  - ASTHENIA [None]
  - FATIGUE [None]
  - PSORIASIS [None]
  - ABDOMINAL DISCOMFORT [None]
